FAERS Safety Report 4633465-0 (Version None)
Quarter: 2005Q2

REPORT INFORMATION
  Report Type: 
  Country: None (occurrence: None)
  Receive Date: 20050412
  Receipt Date: 20050401
  Transmission Date: 20051028
  Serious: Yes (Hospitalization)
  Sender: FDA-Public Use
  Company Number: 2005AL001274

PATIENT
  Age: 85 Year
  Sex: Male

DRUGS (11)
  1. SERAX [Suspect]
     Dosage: SEE IMAGE
     Route: 048
     Dates: end: 20041118
  2. SERAX [Suspect]
     Dosage: SEE IMAGE
     Route: 048
     Dates: start: 20041119, end: 20041121
  3. SERAX [Suspect]
     Dosage: SEE IMAGE
     Route: 048
     Dates: start: 20040101
  4. DOGMATIL [Concomitant]
  5. LEXOMIL [Concomitant]
  6. AMLOR [Concomitant]
  7. BUFLOMEDIL [Concomitant]
  8. BETAHISTINE [Concomitant]
  9. FOSAMAX [Concomitant]
  10. OMEPRAZOLE [Concomitant]
  11. ATHYMIL [Concomitant]

REACTIONS (1)
  - DRUG WITHDRAWAL CONVULSIONS [None]
